FAERS Safety Report 7487533-9 (Version None)
Quarter: 2011Q2

REPORT INFORMATION
  Report Type: 
  Country: None (occurrence: None)
  Receive Date: 20110511
  Receipt Date: 20110428
  Transmission Date: 20111010
  Serious: Yes (Hospitalization)
  Sender: FDA-Public Use
  Company Number: 2011AP000871

PATIENT
  Age: 73 Year
  Sex: Female

DRUGS (6)
  1. CHOLECALCIFEROL [Concomitant]
  2. LEFLUNOMIDE [Suspect]
     Indication: RHEUMATOID ARTHRITIS
     Dosage: 20 MG QD, PO
     Route: 048
  3. LANSOPRAZOLE [Concomitant]
  4. FERROUS FUMARATE [Concomitant]
  5. PREDNISOLONE [Concomitant]
  6. CALCIUM CARBONATE [Concomitant]

REACTIONS (3)
  - SPUTUM DISCOLOURED [None]
  - PNEUMONIA [None]
  - BRONCHIECTASIS [None]
